FAERS Safety Report 5975931-1 (Version None)
Quarter: 2008Q4

REPORT INFORMATION
  Report Type: 
  Country: None (occurrence: None)
  Receive Date: 20081202
  Receipt Date: 20081128
  Transmission Date: 20090506
  Serious: Yes (Life-Threatening, Hospitalization)
  Sender: FDA-Public Use
  Company Number: DE-ROCHE-383029

PATIENT
  Sex: Male
  Weight: 75 kg

DRUGS (9)
  1. PEG-INTERFERON ALFA 2A (RO 25-8310) [Suspect]
     Route: 058
     Dates: start: 20040730, end: 20041124
  2. RIBAVIRIN [Suspect]
     Route: 048
     Dates: start: 20040730, end: 20041124
  3. AMANTADINE HCL [Suspect]
     Route: 048
     Dates: start: 20040715, end: 20041124
  4. LORAZEPAM [Concomitant]
     Dosage: 1MG IRREGULARLY.
     Route: 048
     Dates: start: 20040805
  5. PANTOZOL [Concomitant]
     Route: 048
     Dates: start: 20041004
  6. NOVALGIN [Concomitant]
     Dosage: 20 AS NEEDED.
     Route: 048
     Dates: start: 20041124, end: 20041125
  7. TRAUMAL [Concomitant]
     Dosage: 20 AS NEEDED.
     Route: 048
     Dates: start: 20041124, end: 20041125
  8. IBUPROFEN TABLETS [Concomitant]
     Indication: ANALGESIA
  9. TRADOL [Concomitant]
     Indication: ANALGESIA

REACTIONS (6)
  - BACK PAIN [None]
  - HEADACHE [None]
  - NAUSEA [None]
  - NECROTISING FASCIITIS [None]
  - STREPTOCOCCAL SEPSIS [None]
  - VOMITING [None]
